FAERS Safety Report 24400892 (Version 1)
Quarter: 2024Q4

REPORT INFORMATION
  Report Type: Spontaneous
  Country: US (occurrence: US)
  Receive Date: 20241006
  Receipt Date: 20241006
  Transmission Date: 20250114
  Serious: Yes (Hospitalization, Other)
  Sender: ADVANZ PHARMA
  Company Number: US-ADVANZ PHARMA-202409007949

PATIENT

DRUGS (1)
  1. DIGOXIN [Suspect]
     Active Substance: DIGOXIN
     Indication: Atrial fibrillation
     Dosage: UNK

REACTIONS (11)
  - Pulmonary embolism [Unknown]
  - Toxicity to various agents [Unknown]
  - Syncope [Unknown]
  - Loss of consciousness [Unknown]
  - Dizziness [Unknown]
  - Nausea [Unknown]
  - Bradycardia [Unknown]
  - Hypotension [Unknown]
  - Hypothyroidism [Unknown]
  - Conjunctival haemorrhage [Unknown]
  - Atrioventricular block first degree [Unknown]
